FAERS Safety Report 6233007-2 (Version None)
Quarter: 2009Q2

REPORT INFORMATION
  Report Type: 
  Country: None (occurrence: None)
  Receive Date: 20090617
  Receipt Date: 20090611
  Transmission Date: 20091009
  Serious: Yes (Hospitalization, Disabling, Other)
  Sender: FDA-Public Use
  Company Number: A0790418A

PATIENT
  Sex: Female

DRUGS (1)
  1. EPZICOM [Suspect]
     Indication: HIV INFECTION
     Dosage: 1TAB PER DAY
     Route: 048

REACTIONS (4)
  - DYSPHAGIA [None]
  - OEDEMA PERIPHERAL [None]
  - RASH [None]
  - STEVENS-JOHNSON SYNDROME [None]
